FAERS Safety Report 16404531 (Version 1)
Quarter: 2019Q2

REPORT INFORMATION
  Report Type: Report from Study
  Country: ES (occurrence: ES)
  Receive Date: 20190607
  Receipt Date: 20190607
  Transmission Date: 20190711
  Serious: Yes (Other)
  Sender: FDA-Public Use
  Company Number: ES-JNJFOC-20190540259

PATIENT

DRUGS (6)
  1. INFLIXIMAB, RECOMBINANT [Suspect]
     Active Substance: INFLIXIMAB
     Indication: ARTHROPATHY
     Route: 042
  2. ABATACEPT [Suspect]
     Active Substance: ABATACEPT
     Indication: ARTHROPATHY
     Route: 065
  3. ADALIMUMAB [Suspect]
     Active Substance: ADALIMUMAB
     Indication: ARTHROPATHY
     Route: 065
  4. GOLIMUMAB [Suspect]
     Active Substance: GOLIMUMAB
     Indication: ARTHROPATHY
     Route: 058
  5. CERTOLIZUMAB [Suspect]
     Active Substance: CERTOLIZUMAB
     Indication: ARTHROPATHY
     Route: 065
  6. ETANERCEPT [Suspect]
     Active Substance: ETANERCEPT
     Indication: ARTHROPATHY
     Route: 065

REACTIONS (11)
  - Hypersensitivity [Unknown]
  - Treatment failure [Unknown]
  - Pulmonary toxicity [Unknown]
  - Neoplasm malignant [Unknown]
  - Nervous system disorder [Unknown]
  - Gastrointestinal disorder [Unknown]
  - Immunosuppression [Unknown]
  - Blood disorder [Unknown]
  - Adverse event [Unknown]
  - Urinary tract toxicity [Unknown]
  - Lupus-like syndrome [Unknown]
